FAERS Safety Report 17386890 (Version 2)
Quarter: 2020Q1

REPORT INFORMATION
  Report Type: Spontaneous
  Country: TR (occurrence: TR)
  Receive Date: 20200206
  Receipt Date: 20200306
  Transmission Date: 20200409
  Serious: Yes (Disabling)
  Sender: FDA-Public Use
  Company Number: TR-009507513-2002TUR001150

PATIENT
  Sex: Female

DRUGS (1)
  1. KEYTRUDA [Suspect]
     Active Substance: PEMBROLIZUMAB
     Indication: CERVIX CANCER METASTATIC
     Dosage: SINGLE DOSE
     Dates: start: 20200226

REACTIONS (3)
  - Muscle atrophy [Recovering/Resolving]
  - Gait inability [Recovering/Resolving]
  - Fatigue [Recovering/Resolving]
